FAERS Safety Report 7643119-4 (Version None)
Quarter: 2011Q3

REPORT INFORMATION
  Report Type: 
  Country: None (occurrence: None)
  Receive Date: 20110729
  Receipt Date: 20110722
  Transmission Date: 20111222
  Serious: Yes (Other)
  Sender: FDA-Public Use
  Company Number: NL-AMGEN-NLDSP2011030058

PATIENT
  Age: 59 Year
  Sex: Male

DRUGS (5)
  1. METHOTREXATE SODIUM [Concomitant]
     Dosage: UNK UNK, UNK
  2. FOLIC ACID [Concomitant]
     Dosage: UNK UNK, UNK
  3. ARCOXIA [Concomitant]
     Dosage: UNK UNK, UNK
  4. ENBREL [Suspect]
     Indication: RHEUMATOID ARTHRITIS
     Dosage: 50 MG, WEEKLY
     Dates: start: 20110421
  5. PREDNISONE [Concomitant]
     Dosage: UNK UNK, UNK

REACTIONS (2)
  - DYSPNOEA [None]
  - HEART RATE INCREASED [None]
